FAERS Safety Report 20795533 (Version 3)
Quarter: 2022Q4

REPORT INFORMATION
  Report Type: Spontaneous
  Country: JP (occurrence: JP)
  Receive Date: 20220506
  Receipt Date: 20221213
  Transmission Date: 20230113
  Serious: Yes (Hospitalization, Other)
  Sender: FDA-Public Use
  Company Number: JP-BRISTOL-MYERS SQUIBB COMPANY-2022-034418

PATIENT
  Age: 75 Year
  Sex: Male
  Weight: 70.0 kg

DRUGS (1)
  1. ABATACEPT [Suspect]
     Active Substance: ABATACEPT
     Indication: Rheumatoid arthritis
     Route: 041

REACTIONS (1)
  - Cholecystitis acute [Recovered/Resolved]

NARRATIVE: CASE EVENT DATE: 20180817
